FAERS Safety Report 9179313 (Version 1)
Quarter: 2012Q4

REPORT INFORMATION
  Report Type: 
  Country: US (occurrence: US)
  Receive Date: 20121029
  Receipt Date: 20121029
  Transmission Date: 20130627
  Serious: No
  Sender: FDA-Public Use
  Company Number: US-AMGEN-USASP2012052724

PATIENT
  Age: 52 Year
  Sex: Female
  Weight: 73.92 kg

DRUGS (9)
  1. ENBREL [Suspect]
     Indication: PRODUCT USED FOR UNKNOWN INDICATION
     Dosage: 50 mg, qwk
     Route: 058
  2. COUMADIN                           /00014802/ [Concomitant]
     Dosage: 10 mg, UNK
  3. LYRICA [Concomitant]
     Dosage: 150 mg, UNK
  4. DIOVAN [Concomitant]
     Dosage: 320 mg, UNK
  5. ATENOLOL [Concomitant]
     Dosage: 100 mg, UNK
  6. BUMETANIDE [Concomitant]
     Dosage: 0.5 mg, UNK
  7. OMEPRAZOLE [Concomitant]
     Dosage: 20 mg, UNK
  8. FENTANYL [Concomitant]
     Dosage: 25 mug, UNK
  9. CINNAMON                           /01647501/ [Concomitant]
     Dosage: 500 mg, UNK

REACTIONS (2)
  - Decreased appetite [Unknown]
  - Weight decreased [Unknown]
